FAERS Safety Report 8554030-9 (Version None)
Quarter: 2012Q3

REPORT INFORMATION
  Report Type: 
  Country: None (occurrence: None)
  Receive Date: 20120731
  Receipt Date: 20120726
  Transmission Date: 20120928
  Serious: Yes (Life-Threatening)
  Sender: FDA-Public Use
  Company Number: DE-009507513-1207DEU011734

PATIENT

DRUGS (2)
  1. JANUVIA [Suspect]
     Indication: DIABETES MELLITUS
     Dosage: 50 MG, QD
     Route: 048
     Dates: start: 20120701, end: 20120719
  2. JANUVIA [Suspect]
     Indication: DIABETIC COMPLICATION

REACTIONS (6)
  - COLD SWEAT [None]
  - HALLUCINATION [None]
  - GENERAL PHYSICAL HEALTH DETERIORATION [None]
  - HYPOGLYCAEMIA [None]
  - DISORIENTATION [None]
  - BLOOD PRESSURE DECREASED [None]
